FAERS Safety Report 18171565 (Version 1)
Quarter: 2020Q3

REPORT INFORMATION
  Report Type: Spontaneous
  Country: US (occurrence: US)
  Receive Date: 20200819
  Receipt Date: 20200819
  Transmission Date: 20201103
  Serious: No
  Sender: FDA-Public Use
  Company Number: US-JACOBUS PHARMACEUTICAL COMPANY, INC.-2088808

PATIENT
  Age: 48 Year
  Sex: Male

DRUGS (1)
  1. RUZURGI [Suspect]
     Active Substance: AMIFAMPRIDINE
     Route: 048

REACTIONS (3)
  - Facial asymmetry [None]
  - Headache [None]
  - Diplopia [None]
